FAERS Safety Report 6643235-X (Version None)
Quarter: 2010Q1

REPORT INFORMATION
  Report Type: 
  Country: None (occurrence: None)
  Receive Date: 20100319
  Receipt Date: 20100310
  Transmission Date: 20100710
  Serious: Yes (Hospitalization, Other)
  Sender: FDA-Public Use
  Company Number: CA-ABBOTT-10P-028-0630106-00

PATIENT
  Sex: Female
  Weight: 65.83 kg

DRUGS (17)
  1. HUMIRA [Suspect]
     Indication: CROHN'S DISEASE
     Route: 058
     Dates: start: 20100203
  2. HUMIRA [Suspect]
     Route: 058
     Dates: start: 20081223, end: 20100108
  3. PREDNISONE [Suspect]
     Indication: DRUG USE FOR UNKNOWN INDICATION
     Route: 048
     Dates: start: 20100204
  4. PREDNISONE [Suspect]
     Route: 048
  5. ESTRADERM [Concomitant]
     Indication: DRUG USE FOR UNKNOWN INDICATION
     Dosage: 1- 50 MCG PATCH TOPICALLY EVERY TUESDAY
     Route: 061
     Dates: start: 20100204
  6. CITALOPRAM [Concomitant]
     Indication: DEPRESSION
  7. FOLIC ACID [Concomitant]
     Indication: DRUG USE FOR UNKNOWN INDICATION
  8. METHOTREXATE [Concomitant]
     Indication: DRUG USE FOR UNKNOWN INDICATION
     Route: 058
  9. NEXIUM [Concomitant]
     Indication: DRUG USE FOR UNKNOWN INDICATION
     Route: 048
  10. CALCIUM [Concomitant]
     Indication: DRUG USE FOR UNKNOWN INDICATION
     Route: 048
  11. IRON [Concomitant]
     Indication: DRUG USE FOR UNKNOWN INDICATION
     Route: 048
  12. BUSCOPA [Concomitant]
     Indication: ABDOMINAL PAIN UPPER
     Dosage: 1 - 10MG TAB EVERY 6 HOURS AS NEEDED
     Route: 048
     Dates: start: 20100204
  13. SALBUTAMOL [Concomitant]
     Indication: WHEEZING
     Dosage: 100 MCG 2 PUFFS 3X A DAY AS NEEDED
     Dates: start: 20100204
  14. SALBUTAMOL [Concomitant]
     Indication: DYSPNOEA
  15. IMITREX [Concomitant]
     Indication: MIGRAINE
     Route: 048
  16. VITAMIN D [Concomitant]
     Indication: DRUG USE FOR UNKNOWN INDICATION
     Route: 048
  17. GUMMY BEARS VITAMINS [Concomitant]
     Indication: DRUG USE FOR UNKNOWN INDICATION
     Route: 048

REACTIONS (10)
  - ABDOMINAL DISTENSION [None]
  - ABDOMINAL PAIN [None]
  - BLOOD POTASSIUM DECREASED [None]
  - CYSTITIS [None]
  - FOOD INTOLERANCE [None]
  - GASTROINTESTINAL DISORDER [None]
  - INFUSION RELATED REACTION [None]
  - MEDICATION RESIDUE [None]
  - VOMITING [None]
  - WEIGHT DECREASED [None]
